FAERS Safety Report 23638255 (Version 1)
Quarter: 2024Q1

REPORT INFORMATION
  Report Type: Spontaneous
  Country: PL (occurrence: PL)
  Receive Date: 20240315
  Receipt Date: 20240315
  Transmission Date: 20240410
  Serious: Yes (Life-Threatening)
  Sender: FDA-Public Use
  Company Number: None

PATIENT
  Age: 64 Year
  Sex: Female
  Weight: 74 kg

DRUGS (5)
  1. IRINOTECAN [Suspect]
     Active Substance: IRINOTECAN
     Indication: Colon cancer
     Dosage: DOSE: 325.8 (DOSE UNIT UNKNOWN)?ROUTE: INTRAVENOUS
     Route: 042
     Dates: start: 20200915, end: 20200915
  2. LEVOLEUCOVORIN DISODIUM [Suspect]
     Active Substance: LEVOLEUCOVORIN DISODIUM
     Indication: Colon cancer
     Dosage: DOSE: 362 (DOSE UNIT UNKNOWN)?LEVOFOLIC 0.2/4MG?ROUTE: INTRAVENOUS
     Dates: start: 20200915, end: 20200915
  3. FLUOROURACIL [Suspect]
     Active Substance: FLUOROURACIL
     Indication: Colon cancer
     Dosage: DOSE: 724 (DOSE UNIT UNKNOWN);?FLUOROURACIL 5000 MEDAC 5.0/100ML; LOT: K190613AA, EXP: EXP: 31/10/20
     Dates: start: 20200915, end: 20200916
  4. FLUOROURACIL [Suspect]
     Active Substance: FLUOROURACIL
     Dosage: DOSE: 2172 (DOSE UNIT UNKNOWN);?FLUOROURACIL 5000 MEDAC 5.0/100ML; LOT: K190613AA, EXP: EXP: 31/10/2
     Dates: start: 20200915, end: 20200916
  5. CETUXIMAB [Suspect]
     Active Substance: CETUXIMAB
     Indication: Colon cancer
     Dosage: DOSE: 905 (DOSE UNIT UNKNOWN);?ROUTE: INTRAVENOUS
     Dates: start: 20200915, end: 20200915

REACTIONS (3)
  - Acute kidney injury [Recovered/Resolved]
  - Diarrhoea [Recovered/Resolved]
  - Neutropenia [Recovered/Resolved]

NARRATIVE: CASE EVENT DATE: 20200923
